FAERS Safety Report 19590841 (Version 3)
Quarter: 2022Q1

REPORT INFORMATION
  Report Type: Spontaneous
  Country: PL (occurrence: PL)
  Receive Date: 20210721
  Receipt Date: 20220112
  Transmission Date: 20220423
  Serious: Yes (Hospitalization, Other)
  Sender: FDA-Public Use
  Company Number: PL-SA-SAC20210611000057

PATIENT
  Age: 39 Year
  Sex: Male

DRUGS (11)
  1. ASPIRIN [Suspect]
     Active Substance: ASPIRIN
     Dosage: 75 MG
  2. ASPIRIN\ATORVASTATIN\CLOPIDOGREL [Suspect]
     Active Substance: ASPIRIN\ATORVASTATIN\CLOPIDOGREL
     Dosage: 40 MG
     Route: 065
  3. ASPIRIN\ATORVASTATIN\CLOPIDOGREL [Suspect]
     Active Substance: ASPIRIN\ATORVASTATIN\CLOPIDOGREL
     Dosage: 80 MG
     Route: 065
  4. BISOPROLOL FUMARATE [Suspect]
     Active Substance: BISOPROLOL FUMARATE
     Dosage: 10 MG
     Route: 065
  5. EZETIMIBE [Suspect]
     Active Substance: EZETIMIBE
     Dosage: UNK
     Route: 065
  6. FUROSEMIDE [Suspect]
     Active Substance: FUROSEMIDE
     Dosage: UNK
     Route: 042
  7. IVABRADINE HYDROCHLORIDE [Suspect]
     Active Substance: IVABRADINE HYDROCHLORIDE
     Dosage: 7.5 MG
     Route: 065
  8. INSULIN NOS [Suspect]
     Active Substance: INSULIN NOS
     Indication: Diabetes mellitus
     Dosage: UNK
     Route: 065
  9. RAMIPRIL [Suspect]
     Active Substance: RAMIPRIL
     Dosage: 5 MG
     Route: 048
  10. SPIRONOLACTONE [Suspect]
     Active Substance: SPIRONOLACTONE
     Dosage: UNK (1 X 25 MG)
     Route: 065
  11. TICAGRELOR [Suspect]
     Active Substance: TICAGRELOR
     Dosage: 90 MG, 2X/DAY
     Route: 048

REACTIONS (6)
  - Angina pectoris [Unknown]
  - ECG signs of myocardial ischaemia [Unknown]
  - Low density lipoprotein increased [Unknown]
  - Drug ineffective [Unknown]
  - Angina unstable [Unknown]
  - Blood triglycerides increased [Unknown]
